FAERS Safety Report 20739434 (Version 3)
Quarter: 2022Q3

REPORT INFORMATION
  Report Type: Spontaneous
  Country: JP (occurrence: JP)
  Receive Date: 20220422
  Receipt Date: 20220714
  Transmission Date: 20221027
  Serious: No
  Sender: FDA-Public Use
  Company Number: JP-GSKNCCC-Case-01465943_AE-56857

PATIENT

DRUGS (4)
  1. LAMICTAL [Suspect]
     Active Substance: LAMOTRIGINE
     Indication: Epilepsy
     Dosage: UNK
  2. LAMICTAL [Suspect]
     Active Substance: LAMOTRIGINE
     Dosage: 400 MG/DAY (BID, MORNING AND EVENING)
     Dates: start: 202109, end: 20220410
  3. LAMICTAL [Suspect]
     Active Substance: LAMOTRIGINE
     Dosage: 350 MG/DAY
     Dates: start: 20220411
  4. VALPROATE SODIUM [Concomitant]
     Active Substance: VALPROATE SODIUM
     Indication: Epilepsy
     Dosage: 600 MG, QD

REACTIONS (2)
  - Prescribed overdose [Unknown]
  - Off label use [Unknown]
